FAERS Safety Report 7713244-8 (Version None)
Quarter: 2011Q3

REPORT INFORMATION
  Report Type: 
  Country: None (occurrence: None)
  Receive Date: 20110826
  Receipt Date: 20110811
  Transmission Date: 20111222
  Serious: Yes (Hospitalization)
  Sender: FDA-Public Use
  Company Number: SG-BAYER-2011-071795

PATIENT
  Age: 55 Year
  Sex: Female

DRUGS (6)
  1. ASPIRIN [Suspect]
  2. OMEPRAZOLE [Concomitant]
     Dosage: 20 MG, BID
     Route: 048
  3. AMLODIPINE [Concomitant]
     Dosage: 5 MG, QD
     Route: 048
  4. CALCIUM ACETATE [Concomitant]
     Dosage: 667 MG, TID
     Route: 048
  5. LOVASTATIN [Concomitant]
     Dosage: 20 MG, QD
     Route: 048
  6. METOPROLOL [Concomitant]
     Dosage: 25 MG, BID
     Route: 048

REACTIONS (2)
  - ANGIOEDEMA [None]
  - EYELID OEDEMA [None]
